FAERS Safety Report 18668999 (Version 1)
Quarter: 2020Q4

REPORT INFORMATION
  Report Type: Spontaneous
  Country: CO (occurrence: CO)
  Receive Date: 20201227
  Receipt Date: 20201227
  Transmission Date: 20210114
  Serious: No
  Sender: FDA-Public Use
  Company Number: None

PATIENT
  Age: 19 Year
  Sex: Female
  Weight: 60 kg

DRUGS (1)
  1. IVERMECTINA 0,6% KILOX 0.6% [Suspect]
     Active Substance: IVERMECTIN
     Indication: PROPHYLAXIS
     Dosage: ?          QUANTITY:60 DROP(S);OTHER FREQUENCY:1 TIME;?
     Route: 048
     Dates: start: 20201218, end: 20201218

REACTIONS (3)
  - Rash pruritic [None]
  - Rash [None]
  - Rash erythematous [None]

NARRATIVE: CASE EVENT DATE: 20201223
